FAERS Safety Report 7309883-9 (Version None)
Quarter: 2011Q1

REPORT INFORMATION
  Report Type: 
  Country: None (occurrence: None)
  Receive Date: 20110224
  Receipt Date: 20100212
  Transmission Date: 20110831
  Serious: No
  Sender: FDA-Public Use
  Company Number: 2010BI005180

PATIENT
  Sex: Female

DRUGS (2)
  1. UNKNOWN MEDICATION [Concomitant]
  2. TYSABRI [Suspect]
     Indication: MULTIPLE SCLEROSIS
     Route: 042
     Dates: start: 20090105

REACTIONS (12)
  - HEMIPARESIS [None]
  - VOMITING [None]
  - DEPRESSION [None]
  - SOMNOLENCE [None]
  - DISTURBANCE IN ATTENTION [None]
  - GAIT DISTURBANCE [None]
  - FALL [None]
  - ASTHENIA [None]
  - APHASIA [None]
  - APATHY [None]
  - LOSS OF CONTROL OF LEGS [None]
  - NAUSEA [None]
